FAERS Safety Report 10233604 (Version 2)
Quarter: 2014Q2

REPORT INFORMATION
  Report Type: Spontaneous
  Country: DE (occurrence: DE)
  Receive Date: 20140612
  Receipt Date: 20140612
  Transmission Date: 20141212
  Serious: Yes (Other)
  Sender: FDA-Public Use
  Company Number: DE-SA-2014SA066048

PATIENT
  Age: 78 Year
  Sex: Male
  Weight: 74.5 kg

DRUGS (5)
  1. KARVEZIDE [Suspect]
     Indication: PRODUCT USED FOR UNKNOWN INDICATION
     Dosage: DOSE: 12.5/300 MG
     Route: 048
     Dates: start: 20140511, end: 20140521
  2. ASS [Concomitant]
     Route: 048
  3. EUTHYROX [Concomitant]
     Route: 048
  4. CARVEDILOL [Concomitant]
  5. AMLODIPINE [Concomitant]

REACTIONS (2)
  - Hypertensive crisis [Recovered/Resolved]
  - Extrasystoles [Unknown]
